FAERS Safety Report 8504520-X (Version None)
Quarter: 2012Q3

REPORT INFORMATION
  Report Type: 
  Country: None (occurrence: None)
  Receive Date: 20120711
  Receipt Date: 20120706
  Transmission Date: 20120928
  Serious: Yes (Other)
  Sender: FDA-Public Use
  Company Number: US-ROCHE-1081186

PATIENT
  Age: 58 Year
  Sex: Female
  Weight: 88.984 kg

DRUGS (4)
  1. ACETAMINOPHEN/HYDROCODONE BITARTRATE [Concomitant]
     Indication: PAIN
     Route: 048
     Dates: start: 20110101
  2. XELODA [Suspect]
     Route: 048
     Dates: start: 20120413
  3. LOPERAMIDE [Concomitant]
     Indication: DIARRHOEA
     Route: 048
     Dates: start: 20120101
  4. XELODA [Suspect]
     Indication: BREAST CANCER METASTATIC
     Route: 048
     Dates: start: 20120322, end: 20120402

REACTIONS (5)
  - STOMATITIS [None]
  - DIARRHOEA [None]
  - ERYTHEMA [None]
  - PHOTODERMATOSIS [None]
  - MUCOSAL INFLAMMATION [None]
